FAERS Safety Report 6532213-7 (Version None)
Quarter: 2010Q2

REPORT INFORMATION
  Report Type: 
  Country: None (occurrence: None)
  Receive Date: 20100107
  Receipt Date: 20100107
  Transmission Date: 20101027
  Serious: Yes (Other)
  Sender: FDA-Public Use
  Company Number: None

PATIENT
  Age: 45 Year
  Sex: Female
  Weight: 113.3993 kg

DRUGS (1)
  1. NAPHAZOLINE HCL [Suspect]
     Indication: SINUS CONGESTION
     Dosage: 2 - 3 SPRAYS 12 HOURS -3 DAYS- NASAL
     Route: 045
     Dates: start: 20091114, end: 20091116

REACTIONS (4)
  - BURNING SENSATION [None]
  - HEADACHE [None]
  - NONSPECIFIC REACTION [None]
  - PAIN [None]
